FAERS Safety Report 17554079 (Version 3)
Quarter: 2020Q1

REPORT INFORMATION
  Report Type: Spontaneous
  Country: FR (occurrence: FR)
  Receive Date: 20200318
  Receipt Date: 20200327
  Transmission Date: 20200409
  Serious: Yes (Other)
  Sender: FDA-Public Use
  Company Number: FR-TEVA-2020-FR-1202579

PATIENT
  Age: 27 Year
  Sex: Female

DRUGS (4)
  1. PREGABALINE [Concomitant]
     Active Substance: PREGABALIN
     Dosage: 150 MILLIGRAM
     Route: 048
     Dates: start: 201909
  2. PLAQUENIL [Concomitant]
     Active Substance: HYDROXYCHLOROQUINE SULFATE
     Dosage: UNKNOWN
     Route: 048
     Dates: start: 2015
  3. OLANZAPINE. [Suspect]
     Active Substance: OLANZAPINE
     Indication: CYCLOTHYMIC DISORDER
     Dosage: 5 MILLIGRAM
     Route: 048
     Dates: start: 20200217, end: 20200221
  4. FLUOXETINE [Concomitant]
     Active Substance: FLUOXETINE HYDROCHLORIDE
     Dosage: 40 MILLIGRAM
     Route: 048
     Dates: start: 2018

REACTIONS (4)
  - Cogwheel rigidity [Not Recovered/Not Resolved]
  - Dysarthria [Not Recovered/Not Resolved]
  - Dysphemia [Not Recovered/Not Resolved]
  - Extrapyramidal disorder [Not Recovered/Not Resolved]

NARRATIVE: CASE EVENT DATE: 20200219
